FAERS Safety Report 21030216 (Version 1)
Quarter: 2022Q3

REPORT INFORMATION
  Report Type: Spontaneous
  Country: US (occurrence: None)
  Receive Date: 20220701
  Receipt Date: 20220701
  Transmission Date: 20221027
  Serious: No
  Sender: FDA-Public Use
  Company Number: US-ROCHE-2953443

PATIENT
  Sex: Male
  Weight: 98.518 kg

DRUGS (2)
  1. ACTEMRA [Suspect]
     Active Substance: TOCILIZUMAB
     Indication: Rheumatoid arthritis
     Route: 058
  2. CORTICOSTEROID (UNK INGREDIENTS) [Concomitant]
     Indication: Pain

REACTIONS (5)
  - Skin laceration [Unknown]
  - Tendon pain [Unknown]
  - Needle issue [Unknown]
  - Tendon injury [Unknown]
  - Product quality issue [Unknown]
